FAERS Safety Report 25491313 (Version 1)
Quarter: 2025Q2

REPORT INFORMATION
  Report Type: Spontaneous
  Country: US (occurrence: US)
  Receive Date: 20250629
  Receipt Date: 20250629
  Transmission Date: 20250716
  Serious: No
  Sender: SANOFI AVENTIS
  Company Number: US-SA-2025SA179400

PATIENT
  Sex: Male

DRUGS (3)
  1. DUPIXENT [Suspect]
     Active Substance: DUPILUMAB
     Indication: Nasal polyps
  2. DUPIXENT [Suspect]
     Active Substance: DUPILUMAB
     Indication: Acrochordon
  3. DUPIXENT [Suspect]
     Active Substance: DUPILUMAB
     Indication: Irritable bowel syndrome

REACTIONS (2)
  - Rebound effect [Unknown]
  - Product use in unapproved indication [Unknown]
